FAERS Safety Report 7945220-4 (Version None)
Quarter: 2011Q4

REPORT INFORMATION
  Report Type: 
  Country: None (occurrence: None)
  Receive Date: 20111129
  Receipt Date: 20110420
  Transmission Date: 20120403
  Serious: No
  Sender: FDA-Public Use
  Company Number: US-GLAXOSMITHKLINE-A0924611A

PATIENT
  Age: 73 Year
  Sex: Male

DRUGS (8)
  1. FEXOFENADINE [Concomitant]
  2. SINGULAIR [Concomitant]
  3. VENTOLIN [Concomitant]
     Route: 055
  4. LISINOPRIL [Concomitant]
  5. FLOVENT [Suspect]
     Indication: ASTHMA
     Dosage: 2PUFF TWICE PER DAY
     Route: 055
     Dates: start: 20110101
  6. OMEPRAZOLE [Concomitant]
  7. ALLOPURINOL [Concomitant]
  8. ZOCOR [Concomitant]

REACTIONS (4)
  - PHARYNGEAL DISORDER [None]
  - CANDIDIASIS [None]
  - DYSPHAGIA [None]
  - PHARYNGEAL ULCERATION [None]
